FAERS Safety Report 14706733 (Version 1)
Quarter: 2018Q2

REPORT INFORMATION
  Report Type: Spontaneous
  Country: IN (occurrence: IN)
  Receive Date: 20180402
  Receipt Date: 20180402
  Transmission Date: 20180711
  Serious: Yes (Hospitalization)
  Sender: FDA-Public Use
  Company Number: IN-MYLANLABS-2018M1020097

PATIENT
  Age: 33 Year
  Sex: Male

DRUGS (1)
  1. TRETINOIN. [Suspect]
     Active Substance: TRETINOIN
     Indication: MYCOSIS FUNGOIDES
     Route: 048

REACTIONS (5)
  - Hepatomegaly [Recovered/Resolved]
  - Visceral venous thrombosis [Recovered/Resolved]
  - Pleural effusion [Recovered/Resolved]
  - Splenomegaly [Recovered/Resolved]
  - Ascites [Recovered/Resolved]
